FAERS Safety Report 10221912 (Version 1)
Quarter: 2014Q2

REPORT INFORMATION
  Report Type: Spontaneous
  Country: GB (occurrence: GB)
  Receive Date: 20140606
  Receipt Date: 20140606
  Transmission Date: 20141212
  Serious: No
  Sender: FDA-Public Use
  Company Number: GB-BIOMARINAP-GB-2013-101963

PATIENT
  Age: 2 Year
  Sex: Female

DRUGS (3)
  1. NAGLAZYME [Suspect]
     Indication: MUCOPOLYSACCHARIDOSIS VI
     Dosage: 10 MG, QW
     Route: 041
     Dates: start: 20130701
  2. CHLORPHENAMINE [Concomitant]
     Indication: PREMEDICATION
     Dosage: 1 MG, UNK
  3. PARACETAMOL [Concomitant]
     Indication: PREMEDICATION
     Dosage: 150 MG, UNK

REACTIONS (3)
  - Viral infection [Recovering/Resolving]
  - Vomiting [Recovering/Resolving]
  - Pyrexia [Recovering/Resolving]
